FAERS Safety Report 8981358 (Version 1)
Quarter: 2012Q4

REPORT INFORMATION
  Report Type: 
  Country: US (occurrence: US)
  Receive Date: 20121221
  Receipt Date: 20121221
  Transmission Date: 20130627
  Serious: Yes (Other)
  Sender: FDA-Public Use
  Company Number: US-BAYER-2012-133000

PATIENT
  Age: 15 Year
  Sex: Female

DRUGS (13)
  1. YAZ [Suspect]
  2. VENTOLIN [Concomitant]
  3. FLUTICASONE [Concomitant]
  4. XOPENEX [Concomitant]
  5. XOPENEX [Concomitant]
     Dosage: UNK
     Dates: start: 20101222
  6. AZITHROMYCIN [Concomitant]
  7. DOCUSATE SODIUM [Concomitant]
  8. ACETAMINOPHEN [Concomitant]
  9. PROMETHAZINE [Concomitant]
  10. IBUPROFEN [Concomitant]
  11. EPIPEN [Concomitant]
  12. ALBUTEROL [Concomitant]
     Dosage: UNK
     Dates: start: 20101222
  13. ZOFRAN [Concomitant]

REACTIONS (1)
  - Deep vein thrombosis [None]
